FAERS Safety Report 23444597 (Version 1)
Quarter: 2024Q1

REPORT INFORMATION
  Report Type: Spontaneous
  Country: US (occurrence: None)
  Receive Date: 20240125
  Receipt Date: 20240125
  Transmission Date: 20240410
  Serious: No
  Sender: FDA-Public Use
  Company Number: None

PATIENT
  Age: 18 Year
  Sex: Female

DRUGS (2)
  1. CYMBALTA [Suspect]
     Active Substance: DULOXETINE HYDROCHLORIDE
     Indication: Anxiety
     Route: 048
  2. CYMBALTA [Suspect]
     Active Substance: DULOXETINE HYDROCHLORIDE
     Indication: Depression

REACTIONS (9)
  - Drug ineffective [None]
  - Drug withdrawal syndrome [None]
  - Hyperhidrosis [None]
  - Tremor [None]
  - Headache [None]
  - Pain [None]
  - Influenza like illness [None]
  - Fatigue [None]
  - Irritability [None]
